FAERS Safety Report 4881132-0 (Version None)
Quarter: 2005Q4

REPORT INFORMATION
  Report Type: 
  Country: None (occurrence: None)
  Receive Date: 20051223
  Receipt Date: 20050914
  Transmission Date: 20060501
  Serious: No
  Sender: FDA-Public Use
  Company Number: 05P-163-0310994-00

PATIENT
  Age: 42 Year
  Sex: Female
  Weight: 52.1637 kg

DRUGS (14)
  1. HUMIRA [Suspect]
     Indication: RHEUMATOID ARTHRITIS
     Dosage: 40  MG, 1 IN 1 WK, SUBCUTANEOUS
     Route: 058
     Dates: start: 20040101, end: 20050801
  2. AMMONIUM LACTATE [Concomitant]
  3. CELECOXIB [Concomitant]
  4. HYDROXYCHLOROQUINE PHOSPHATE [Concomitant]
  5. FENTANYL [Concomitant]
  6. PROPACET 100 [Concomitant]
  7. FEXOFENADINE HYDROCHLORIDE [Concomitant]
  8. DIPHENHYDRAMINE [Concomitant]
  9. PSEUDOEPHEDRINE HYDROCHLORIDE [Concomitant]
  10. SERTRALINE HYDROCHLORIDE [Concomitant]
  11. TOPIRAMATE [Concomitant]
  12. LANSOPRAZOLE [Concomitant]
  13. GABAPENTIN [Concomitant]
  14. CLONIPINE [Concomitant]

REACTIONS (1)
  - SYSTEMIC LUPUS ERYTHEMATOSUS RASH [None]
